FAERS Safety Report 9522836 (Version 13)
Quarter: 2017Q1

REPORT INFORMATION
  Report Type: Report from Study
  Country: CA (occurrence: CA)
  Receive Date: 20130913
  Receipt Date: 20170202
  Transmission Date: 20170429
  Serious: Yes (Other)
  Sender: FDA-Public Use
  Company Number: CA-ROCHE-1274213

PATIENT
  Age: 56 Year
  Sex: Female
  Weight: 58 kg

DRUGS (13)
  1. HYDROXYQUINOLINE [Concomitant]
  2. ZYBAN [Concomitant]
     Active Substance: BUPROPION HYDROCHLORIDE
     Route: 048
  3. ACTEMRA [Suspect]
     Active Substance: TOCILIZUMAB
     Route: 042
     Dates: start: 20141104
  4. ACTEMRA [Suspect]
     Active Substance: TOCILIZUMAB
     Route: 042
     Dates: end: 2016
  5. TOFACITINIB [Concomitant]
     Active Substance: TOFACITINIB
     Route: 048
  6. ACTEMRA [Suspect]
     Active Substance: TOCILIZUMAB
     Dosage: LAST DOSE PRIOR TO SAE:07/AUG/2013
     Route: 042
     Dates: start: 20130308
  7. GABAPENTIN. [Concomitant]
     Active Substance: GABAPENTIN
  8. ACTEMRA [Suspect]
     Active Substance: TOCILIZUMAB
     Indication: RHEUMATOID ARTHRITIS
     Dosage: LAST DOSE PRIOR TO SAE:07/AUG/2013
     Route: 042
     Dates: start: 20111213
  9. ACTEMRA [Suspect]
     Active Substance: TOCILIZUMAB
     Route: 042
     Dates: start: 20130405
  10. TRAMADOL. [Concomitant]
     Active Substance: TRAMADOL
  11. TRAMADOL HYDROCHLORIDE. [Concomitant]
     Active Substance: TRAMADOL HYDROCHLORIDE
     Dosage: 1 TABLET ONCE A DAYX30 DAYS REPEATS 2
     Route: 048
  12. SALAGEN [Concomitant]
     Active Substance: PILOCARPINE HYDROCHLORIDE
     Dosage: 1 TABLET ONCE A DAYX30 DAYS REPEATS 2
     Route: 048
  13. ACTEMRA [Suspect]
     Active Substance: TOCILIZUMAB
     Route: 042
     Dates: start: 20160614

REACTIONS (20)
  - Hernia [Unknown]
  - Pain [Not Recovered/Not Resolved]
  - Arthralgia [Unknown]
  - Bone erosion [Unknown]
  - Osteopenia [Not Recovered/Not Resolved]
  - Vision blurred [Recovering/Resolving]
  - Weight increased [Unknown]
  - Wound [Not Recovered/Not Resolved]
  - Back pain [Unknown]
  - Spinal pain [Unknown]
  - Nerve root compression [Recovering/Resolving]
  - Weight decreased [Unknown]
  - Pain in extremity [Unknown]
  - Gastrooesophageal reflux disease [Unknown]
  - Mucosal dryness [Unknown]
  - Foot fracture [Recovering/Resolving]
  - Hypotension [Recovered/Resolved]
  - Joint swelling [Unknown]
  - Musculoskeletal stiffness [Not Recovered/Not Resolved]
  - Visual impairment [Unknown]

NARRATIVE: CASE EVENT DATE: 2013
